FAERS Safety Report 9205275 (Version 2)
Quarter: 2013Q2

REPORT INFORMATION
  Report Type: Spontaneous
  Country: DE (occurrence: DE)
  Receive Date: 20130402
  Receipt Date: 20130402
  Transmission Date: 20140414
  Serious: Yes (Other)
  Sender: FDA-Public Use
  Company Number: CHPA2013DE005151

PATIENT
  Sex: Female

DRUGS (1)
  1. FENISTIL PENCIVIR BEI LIPPENHERPES GETOENTE CREME [Suspect]
     Indication: ORAL HERPES
     Dosage: UNK, Q2H
     Route: 061
     Dates: start: 20130318

REACTIONS (3)
  - Papule [Unknown]
  - Paraesthesia oral [Unknown]
  - Burning sensation [Unknown]
